FAERS Safety Report 5701798-2 (Version None)
Quarter: 2008Q2

REPORT INFORMATION
  Report Type: 
  Country: None (occurrence: None)
  Receive Date: 20080410
  Receipt Date: 20080410
  Transmission Date: 20081010
  Serious: No
  Sender: FDA-Public Use
  Company Number: None

PATIENT
  Sex: Female
  Weight: 94.8018 kg

DRUGS (2)
  1. MISOPROSTOL [Suspect]
     Indication: MYALGIA
     Dates: start: 20060221, end: 20060430
  2. DICLOFENAC SODIUM [Suspect]
     Indication: MYALGIA

REACTIONS (3)
  - CONDITION AGGRAVATED [None]
  - ECONOMIC PROBLEM [None]
  - THERAPEUTIC RESPONSE UNEXPECTED WITH DRUG SUBSTITUTION [None]
